FAERS Safety Report 14555196 (Version 2)
Quarter: 2018Q2

REPORT INFORMATION
  Report Type: Spontaneous
  Country: US (occurrence: US)
  Receive Date: 20180220
  Receipt Date: 20180621
  Transmission Date: 20180711
  Serious: No
  Sender: FDA-Public Use
  Company Number: US-ACTELION-A-US2017-159524

PATIENT
  Age: 67 Year
  Sex: Female

DRUGS (27)
  1. CRANBERRY. [Concomitant]
     Active Substance: CRANBERRY
  2. CARTIA XT [Concomitant]
     Active Substance: DILTIAZEM HYDROCHLORIDE
  3. ASPIRIN 81 [Concomitant]
     Active Substance: ASPIRIN
  4. ULORIC [Concomitant]
     Active Substance: FEBUXOSTAT
  5. PRAVASTATIN. [Concomitant]
     Active Substance: PRAVASTATIN
  6. CITRUCEL [Concomitant]
     Active Substance: METHYLCELLULOSE (4000 MPA.S)
  7. POTASSIUM CHLORIDE. [Concomitant]
     Active Substance: POTASSIUM CHLORIDE
  8. ZANTAC [Concomitant]
     Active Substance: RANITIDINE HYDROCHLORIDE
  9. TRACLEER [Suspect]
     Active Substance: BOSENTAN
     Indication: PULMONARY ARTERIAL HYPERTENSION
     Dosage: 125 MG, BID
     Route: 048
     Dates: start: 20150903
  10. VITAMIN B1 [Concomitant]
     Active Substance: THIAMINE HYDROCHLORIDE
  11. TORSEMIDE. [Concomitant]
     Active Substance: TORSEMIDE
  12. SODIUM BICARBONATE. [Concomitant]
     Active Substance: SODIUM BICARBONATE
  13. ROPINIROLE. [Concomitant]
     Active Substance: ROPINIROLE
  14. PROBIOTIC PEARLS [Concomitant]
  15. MULTIVITAMIN [Concomitant]
     Active Substance: VITAMINS
  16. GABAPENTIN. [Concomitant]
     Active Substance: GABAPENTIN
  17. MIRALAX [Concomitant]
     Active Substance: POLYETHYLENE GLYCOL 3350
  18. VITAMIN D [Concomitant]
     Active Substance: CHOLECALCIFEROL
  19. VITAMIN E [Concomitant]
     Active Substance: .ALPHA.-TOCOPHEROL
  20. ORENITRAM [Concomitant]
     Active Substance: TREPROSTINIL
  21. NIACIN. [Concomitant]
     Active Substance: NIACIN
  22. CIPRO OTICO [Concomitant]
  23. PROMACTA [Concomitant]
     Active Substance: ELTROMBOPAG OLAMINE
  24. HUMALOG [Concomitant]
     Active Substance: INSULIN LISPRO
  25. FERROUS SULFATE. [Concomitant]
     Active Substance: FERROUS SULFATE
  26. CALCITRIOL. [Concomitant]
     Active Substance: CALCITRIOL
  27. PROLIA [Concomitant]
     Active Substance: DENOSUMAB

REACTIONS (4)
  - Nausea [Not Recovered/Not Resolved]
  - Alopecia [Unknown]
  - Hypotension [Unknown]
  - Sinus congestion [Not Recovered/Not Resolved]
